FAERS Safety Report 15275270 (Version 6)
Quarter: 2019Q1

REPORT INFORMATION
  Report Type: Report from Study
  Country: CN (occurrence: CN)
  Receive Date: 20180814
  Receipt Date: 20190110
  Transmission Date: 20190417
  Serious: Yes (Death, Hospitalization)
  Sender: FDA-Public Use
  Company Number: CN-ROCHE-2166881

PATIENT
  Age: 84 Year
  Sex: Male
  Weight: 66 kg

DRUGS (36)
  1. ENZALUTAMIDE [Suspect]
     Active Substance: ENZALUTAMIDE
     Indication: HORMONE-REFRACTORY PROSTATE CANCER
     Dosage: DATE OF MOST RECENT DOSE (120 MG) OF SUSPECTED ENZALUTAMIDE PRIOR TO THE ONSET OF PULMONARY INFECTIO
     Route: 048
     Dates: start: 20180404
  2. FUROSEMIDE. [Concomitant]
     Active Substance: FUROSEMIDE
     Route: 065
  3. INDOMETACIN [Concomitant]
     Active Substance: INDOMETHACIN
  4. MOXIFLOXACIN HYDROCHLORIDE. [Concomitant]
     Active Substance: MOXIFLOXACIN HYDROCHLORIDE
     Route: 065
  5. POLYENE PHOSPHATIDYLCHOLINE [Concomitant]
     Active Substance: PHOSPHOLIPID
  6. DIHYDROCODEINE BITARTRATE/PARACETAMOL [Concomitant]
     Active Substance: ACETAMINOPHEN\DIHYDROCODEINE BITARTRATE
     Route: 048
  7. LEVOFLOXACIN HYDROCHLORIDE [Concomitant]
     Active Substance: LEVOFLOXACIN HYDROCHLORIDE
  8. BERBERINE HYDROCHLORIDE [Concomitant]
     Active Substance: BERBERINE
  9. POTASSIUM CHLORIDE. [Concomitant]
     Active Substance: POTASSIUM CHLORIDE
     Route: 065
  10. ESTAZOLAM. [Concomitant]
     Active Substance: ESTAZOLAM
  11. GLUTATHIONE REDUCED [Concomitant]
     Route: 065
  12. ERDOSTEINE [Concomitant]
     Active Substance: ERDOSTEINE
     Route: 048
  13. ALBUMIN (HUMAN SERUM ALBUMIN) [Concomitant]
  14. ATEZOLIZUMAB. [Suspect]
     Active Substance: ATEZOLIZUMAB
     Indication: HORMONE-REFRACTORY PROSTATE CANCER
     Dosage: DATE OF MOST RECENT DOSE (1200 MG) OF ATEZOLIZUMAB PRIOR TO THE ONSET OF ANOREXIA, MALAISE AND PULMO
     Route: 042
  15. CEFOXITIN SODIUM [Concomitant]
     Active Substance: CEFOXITIN SODIUM
  16. ALPRAZOLAM. [Concomitant]
     Active Substance: ALPRAZOLAM
     Route: 048
  17. ACETYLCYSTEINE. [Concomitant]
     Active Substance: ACETYLCYSTEINE
     Route: 048
  18. BROMHEXINE HYDROCHLORIDE [Concomitant]
     Active Substance: BROMHEXINE HYDROCHLORIDE
     Route: 065
  19. AMBROXOL HYDROCHLORIDE [Concomitant]
     Active Substance: AMBROXOL HYDROCHLORIDE
     Dosage: DISPERSIBLE
     Route: 065
  20. GLYCERIN. [Concomitant]
     Active Substance: GLYCERIN
     Route: 065
  21. GLYCERIN. [Concomitant]
     Active Substance: GLYCERIN
     Route: 065
  22. SODIUM CHLORIDE. [Concomitant]
     Active Substance: SODIUM CHLORIDE
     Route: 065
  23. AZTREONAM. [Concomitant]
     Active Substance: AZTREONAM
     Route: 065
  24. RECOMBINANT HUMAN INTERLEUKIN-11 [Concomitant]
     Active Substance: OPRELVEKIN
  25. GRAN [Concomitant]
     Active Substance: FILGRASTIM
  26. COMPOUND LIDOCAINE HYDROCHLORIDE (UNK INGREDIENTS) [Concomitant]
  27. PROMETHAZINE HYDROCHLORIDE. [Concomitant]
     Active Substance: PROMETHAZINE HYDROCHLORIDE
  28. ELEMENE [Concomitant]
     Route: 065
  29. PANTOPRAZOLE SODIUM. [Concomitant]
     Active Substance: PANTOPRAZOLE SODIUM
  30. MEGESTROL ACETATE. [Concomitant]
     Active Substance: MEGESTROL ACETATE
     Dosage: DISPERSIBLE
     Route: 048
  31. VITAMIN C [Concomitant]
     Active Substance: ASCORBIC ACID
  32. MAGNESIUM ASPARTATE/POTASSIUM ASPARTATE [Concomitant]
     Route: 065
  33. VITAMIN K1 [Concomitant]
     Active Substance: PHYTONADIONE
     Route: 065
  34. FOLIC ACID. [Concomitant]
     Active Substance: FOLIC ACID
     Route: 048
     Dates: start: 20180518
  35. DIHYDROCODEINE BITARTRATE/PARACETAMOL [Concomitant]
     Active Substance: ACETAMINOPHEN\DIHYDROCODEINE BITARTRATE
     Route: 065
  36. AMINO ACID [Concomitant]
     Active Substance: AMINO ACIDS
     Route: 065

REACTIONS (4)
  - Lung infection [Not Recovered/Not Resolved]
  - Decreased appetite [Not Recovered/Not Resolved]
  - Malaise [Not Recovered/Not Resolved]
  - Respiratory failure [Fatal]

NARRATIVE: CASE EVENT DATE: 20180719
